FAERS Safety Report 10380709 (Version 1)
Quarter: 2014Q1

REPORT INFORMATION
  Report Type: Spontaneous
  Country: US (occurrence: None)
  Receive Date: 20140306
  Receipt Date: 20140306
  Transmission Date: 20141002
  Serious: Yes (Other)
  Sender: FDA-Public Use
  Company Number: 163-21880-13111635

PATIENT
  Age: 67 Year
  Sex: Female
  Weight: 106.6 kg

DRUGS (8)
  1. REVLIMID (LENALIDOMIDE) (10 MILLIGRAM, CAPSULES) [Suspect]
     Indication: PLASMA CELL MYELOMA
     Route: 048
     Dates: start: 20091101
  2. MEDROL (METHYLPREDNISOLONE) [Concomitant]
  3. AREDIA (PAMIDRONATE DISODIUM) [Concomitant]
  4. CALCIUM (CALCIUM) [Concomitant]
  5. ENOXAPARIN SODIUM (HEPARIN-FRACTION, SODIIUM SALT) [Concomitant]
  6. MULTIVITAMINS (MULTIVITAMINS) [Concomitant]
  7. POTASSIUM BICARBONATE (POTASSIUM BICARBONATE) [Concomitant]
  8. ASPIRIN (ACETYLSALICYLIC ACID) [Concomitant]

REACTIONS (1)
  - Vitamin D decreased [None]
